FAERS Safety Report 13583531 (Version 3)
Quarter: 2017Q3

REPORT INFORMATION
  Report Type: Report from Study
  Country: US (occurrence: US)
  Receive Date: 20170526
  Receipt Date: 20170801
  Transmission Date: 20171127
  Serious: Yes (Hospitalization, Other)
  Sender: FDA-Public Use
  Company Number: US-ROCHE-1938493

PATIENT
  Age: 64 Year
  Sex: Male

DRUGS (1)
  1. CELLCEPT [Suspect]
     Active Substance: MYCOPHENOLATE MOFETIL\MYCOPHENOLATE MOFETIL HYDROCHLORIDE
     Indication: MYASTHENIA GRAVIS
     Dosage: 500MG, 2 TABLETS PO BID
     Route: 048

REACTIONS (7)
  - Metamorphopsia [Unknown]
  - Myasthenia gravis [Unknown]
  - Off label use [Unknown]
  - Blindness unilateral [Recovered/Resolved]
  - Sinusitis [Unknown]
  - Intentional product use issue [Unknown]
  - Gastrointestinal infection [Unknown]

NARRATIVE: CASE EVENT DATE: 201608
